FAERS Safety Report 8234128-5 (Version None)
Quarter: 2012Q1

REPORT INFORMATION
  Report Type: 
  Country: None (occurrence: None)
  Receive Date: 20120326
  Receipt Date: 20120320
  Transmission Date: 20120608
  Serious: Yes (Death, Other)
  Sender: FDA-Public Use
  Company Number: US-CELGENEUS-163-50794-12032485

PATIENT

DRUGS (3)
  1. VIDAZA [Suspect]
     Route: 065
  2. VORINOSTAT [Suspect]
     Route: 065
  3. GEMTUZUMAB OZOGAMICIN [Suspect]
     Route: 065

REACTIONS (8)
  - FEBRILE NEUTROPENIA [None]
  - SEPSIS [None]
  - RESPIRATORY FAILURE [None]
  - INFECTION [None]
  - PANCYTOPENIA [None]
  - RENAL FAILURE ACUTE [None]
  - DEATH [None]
  - HYPOALBUMINAEMIA [None]
